FAERS Safety Report 9727430 (Version 1)
Quarter: 2013Q4

REPORT INFORMATION
  Report Type: Spontaneous
  Country: US (occurrence: US)
  Receive Date: 20131203
  Receipt Date: 20131203
  Transmission Date: 20140711
  Serious: No
  Sender: FDA-Public Use
  Company Number: US-BAYER-2013-145536

PATIENT
  Age: 29 Year
  Sex: Female

DRUGS (1)
  1. BEYAZ [Suspect]
     Indication: MENORRHAGIA
     Dosage: UNK
     Route: 048
     Dates: start: 201101, end: 201310

REACTIONS (2)
  - Dysmenorrhoea [None]
  - Off label use [None]
